FAERS Safety Report 23437239 (Version 1)
Quarter: 2024Q1

REPORT INFORMATION
  Report Type: Report from Study
  Country: IE (occurrence: None)
  Receive Date: 20240124
  Receipt Date: 20240124
  Transmission Date: 20240410
  Serious: Yes (Hospitalization, Disabling)
  Sender: FDA-Public Use
  Company Number: 2023A291246

PATIENT
  Sex: Female

DRUGS (12)
  1. FASENRA [Suspect]
     Active Substance: BENRALIZUMAB
     Indication: Asthma
     Dosage: 30.0MG UNKNOWN
     Route: 058
     Dates: start: 20231121
  2. AMLODIPINE [Concomitant]
     Active Substance: AMLODIPINE BESYLATE
     Route: 050
  3. ASPIRIN [Concomitant]
     Active Substance: ASPIRIN
     Route: 050
  4. BISOPROLOL [Concomitant]
     Active Substance: BISOPROLOL\BISOPROLOL FUMARATE
     Route: 050
  5. ALTAVITA [Concomitant]
     Route: 050
  6. METFORMIN HYDROCHLORIDE\VILDAGLIPTIN [Concomitant]
     Active Substance: METFORMIN HYDROCHLORIDE\VILDAGLIPTIN
     Dosage: 50 MG
     Route: 050
  7. DELTACORTRIL [Concomitant]
     Active Substance: PREDNISOLONE
     Route: 050
  8. MONTELUKAST [Concomitant]
     Active Substance: MONTELUKAST SODIUM
     Route: 050
  9. ATORVASTATIN [Concomitant]
     Active Substance: ATORVASTATIN
     Route: 050
  10. LANSOPRAZOLE [Concomitant]
     Active Substance: LANSOPRAZOLE
     Route: 050
  11. BUDESONIDE\FORMOTEROL\GLYCOPYRRONIUM [Concomitant]
     Active Substance: BUDESONIDE\FORMOTEROL\GLYCOPYRRONIUM
     Dosage: 1 MG
     Route: 050
  12. DURORESP [Concomitant]
     Dosage: 1 MG
     Route: 050

REACTIONS (1)
  - Angiopathy [Not Recovered/Not Resolved]
